FAERS Safety Report 7514706-9 (Version None)
Quarter: 2011Q2

REPORT INFORMATION
  Report Type: 
  Country: None (occurrence: None)
  Receive Date: 20110601
  Receipt Date: 20110504
  Transmission Date: 20111010
  Serious: Yes (Hospitalization, Other)
  Sender: FDA-Public Use
  Company Number: US-BAYER-2011-024058

PATIENT
  Age: 31 Year
  Sex: Female
  Weight: 71.655 kg

DRUGS (16)
  1. ZYMAR [Concomitant]
     Dosage: UNK
     Dates: start: 20030101
  2. ASCORBIC ACID [Concomitant]
  3. YASMIN [Suspect]
     Indication: PREMENSTRUAL SYNDROME
  4. VICODIN [Concomitant]
     Dosage: UNK
     Dates: start: 20010601
  5. ZITHROMAX [Concomitant]
     Dosage: UNK
     Dates: start: 20010601, end: 20060201
  6. METROGEL [Concomitant]
     Dosage: UNK
     Dates: start: 20010601, end: 20060201
  7. CLIDINIUM [Concomitant]
     Dosage: UNK
     Dates: start: 20010601, end: 20060201
  8. FLUCONAZOLE [Concomitant]
     Dosage: UNK
     Dates: start: 20030101
  9. AMOXICILLIN [Concomitant]
     Dosage: UNK UNK, BID
  10. YASMIN [Suspect]
     Indication: DYSMENORRHOEA
  11. CIPRO [Concomitant]
     Dosage: UNK
     Dates: start: 20030101
  12. NASAL SPRAY [Concomitant]
  13. YASMIN [Suspect]
     Indication: CONTRACEPTION
     Dosage: UNK
     Dates: start: 20021004, end: 20040901
  14. NSAID'S [Concomitant]
  15. TAMIFLU [Concomitant]
     Dosage: UNK UNK, BID
     Route: 048
  16. ACETAMINOPHEN [Concomitant]

REACTIONS (11)
  - CHOLELITHIASIS [None]
  - ABDOMINAL PAIN UPPER [None]
  - DIARRHOEA [None]
  - CHOLECYSTECTOMY [None]
  - ANXIETY [None]
  - GALLBLADDER CHOLESTEROLOSIS [None]
  - GASTRIC DISORDER [None]
  - STRESS [None]
  - PANCREATITIS [None]
  - GASTROENTERITIS [None]
  - DEPRESSION [None]
